FAERS Safety Report 11020921 (Version 1)
Quarter: 2015Q2

REPORT INFORMATION
  Report Type: Spontaneous
  Country: US (occurrence: US)
  Receive Date: 20150413
  Receipt Date: 20150413
  Transmission Date: 20150821
  Serious: Yes (Other)
  Sender: FDA-Public Use
  Company Number: US-009507513-1503USA014633

PATIENT
  Age: 70 Year
  Sex: Female

DRUGS (19)
  1. FEMARA [Concomitant]
     Active Substance: LETROZOLE
     Dosage: UNK
     Dates: start: 2008
  2. FASLODEX + HERCEPTIN [Concomitant]
     Dosage: UNK
     Dates: start: 2009
  3. XELODA [Concomitant]
     Active Substance: CAPECITABINE
     Dosage: UNK
     Dates: start: 2012
  4. HERCEPTIN + ZOMETA [Concomitant]
     Dosage: UNK
     Dates: start: 2008
  5. ABRAXANE [Concomitant]
     Active Substance: PACLITAXEL
     Dosage: UNK
     Dates: start: 2009
  6. NAVELBINE [Concomitant]
     Active Substance: VINORELBINE TARTRATE
     Dosage: UNK
     Dates: start: 2013
  7. ZOMETA [Concomitant]
     Active Substance: ZOLEDRONIC ACID
     Dosage: UNK
     Dates: start: 2009
  8. DENOSUMAB + HERCEPTIN [Concomitant]
     Dosage: UNK
     Dates: start: 2010
  9. TDM 1 [Concomitant]
     Dosage: UNK
     Dates: start: 2013
  10. HALAVEN [Concomitant]
     Active Substance: ERIBULIN MESYLATE
     Dosage: UNK
     Dates: start: 2014
  11. EXEMESTANE. [Concomitant]
     Active Substance: EXEMESTANE
     Dosage: UNK
     Dates: start: 2012
  12. FOSAMAX [Suspect]
     Active Substance: ALENDRONATE SODIUM
     Dosage: UNKNOWN
     Route: 048
     Dates: start: 2008
  13. EXEMESTANE (+) LAPATINIB DITOSYLATE + HERCEPTIN [Concomitant]
     Dosage: UNK
     Dates: start: 2012
  14. AFINITOR [Concomitant]
     Active Substance: EVEROLIMUS
     Dosage: UNK
     Dates: start: 2012
  15. DOXIL [Concomitant]
     Active Substance: DOXORUBICIN HYDROCHLORIDE
     Dosage: UNK
     Dates: start: 2014
  16. XELODA [Concomitant]
     Active Substance: CAPECITABINE
     Dosage: UNK
     Dates: start: 2011
  17. XELODA [Concomitant]
     Active Substance: CAPECITABINE
     Dosage: UNK
     Dates: start: 2014
  18. TAMOXIFEN [Concomitant]
     Active Substance: TAMOXIFEN
     Dosage: UNK
     Dates: start: 2009
  19. LAPATINIB [Concomitant]
     Active Substance: LAPATINIB
     Dosage: UNK
     Dates: start: 2010

REACTIONS (1)
  - Breast cancer metastatic [Unknown]
